FAERS Safety Report 15796384 (Version 5)
Quarter: 2019Q3

REPORT INFORMATION
  Report Type: Report from Study
  Country: JP (occurrence: JP)
  Receive Date: 20190108
  Receipt Date: 20190904
  Transmission Date: 20191004
  Serious: Yes (Death, Hospitalization, Other)
  Sender: FDA-Public Use
  Company Number: JP-AEGERION PHARMACEUTICAL, INC-AEGR002866

PATIENT

DRUGS (113)
  1. HUMALOG [Concomitant]
     Active Substance: INSULIN LISPRO
     Dosage: 11 IU, QD
     Dates: start: 20180730, end: 20180920
  2. BONALON [Concomitant]
     Active Substance: ALENDRONATE SODIUM
     Indication: PROPHYLAXIS
     Dosage: 5 MG, UNK
  3. ASVERIN (TIPEPIDINE HIBENZATE) [Concomitant]
     Active Substance: TIPEPIDINE HIBENZATE
     Indication: PROPHYLAXIS
     Dosage: UNK
     Dates: start: 20150306, end: 20150312
  4. HUMULIN R [Concomitant]
     Active Substance: INSULIN HUMAN
     Indication: PRODUCT USED FOR UNKNOWN INDICATION
     Dosage: 6 IU, QD
     Dates: start: 20180726, end: 20180726
  5. CEFZON                             /00559701/ [Concomitant]
     Indication: INJURY
     Dosage: UNK
     Dates: start: 20180515, end: 20180521
  6. FLAGYL [Concomitant]
     Active Substance: METRONIDAZOLE\METRONIDAZOLE HYDROCHLORIDE
     Indication: HEPATIC FUNCTION ABNORMAL
     Dosage: UNK
     Dates: start: 20180802, end: 20180812
  7. LIVACT                             /00847901/ [Concomitant]
     Active Substance: ISOLEUCINE\LEUCINE\VALINE
     Indication: PRODUCT USED FOR UNKNOWN INDICATION
     Dosage: UNK
     Dates: start: 20181107
  8. AMINOLEBAN [Concomitant]
     Active Substance: AMINO ACIDS
     Indication: HEPATIC ENCEPHALOPATHY
     Dosage: UNK
     Dates: start: 20180302, end: 20180306
  9. VITAMEDIN                          /00274301/ [Concomitant]
     Active Substance: BENFOTIAMINE\CYANOCOBALAMIN\PYRIDOXINE HYDROCHLORIDE
     Indication: HEPATIC ENCEPHALOPATHY
     Dosage: UNK
     Dates: start: 20180303, end: 20180311
  10. VITAMEDIN                          /00274301/ [Concomitant]
     Active Substance: BENFOTIAMINE\CYANOCOBALAMIN\PYRIDOXINE HYDROCHLORIDE
     Indication: HEPATIC FAILURE
     Dosage: UNK
     Dates: start: 20181026, end: 20181109
  11. ZETIA [Concomitant]
     Active Substance: EZETIMIBE
     Dosage: 10 MG, QD
     Dates: start: 20171117
  12. URSO [Concomitant]
     Active Substance: URSODIOL
     Indication: PRODUCT USED FOR UNKNOWN INDICATION
     Dosage: 300 MG, QD
     Route: 048
     Dates: end: 20151211
  13. LANTUS [Concomitant]
     Active Substance: INSULIN GLARGINE
     Dosage: 2 IU, QD
     Dates: start: 20150519, end: 20150526
  14. HUMALOG [Concomitant]
     Active Substance: INSULIN LISPRO
     Indication: PRODUCT USED FOR UNKNOWN INDICATION
     Dosage: 12 IU, QD
     Dates: start: 20160128, end: 20160202
  15. HUMALOG [Concomitant]
     Active Substance: INSULIN LISPRO
     Dosage: 12 IU, QD
     Dates: start: 20160525, end: 20160624
  16. HUMALOG [Concomitant]
     Active Substance: INSULIN LISPRO
     Dosage: 26 IU, QD
     Dates: start: 20181030, end: 20181030
  17. HUMALOG [Concomitant]
     Active Substance: INSULIN LISPRO
     Dosage: 5 IU, QD
     Dates: start: 20181103, end: 20181103
  18. HUMALOG [Concomitant]
     Active Substance: INSULIN LISPRO
     Dosage: 6 IU, QD
     Dates: start: 20181104, end: 20181104
  19. PROGRAF [Concomitant]
     Active Substance: TACROLIMUS\TACROLIMUS ANHYDROUS
     Indication: PROPHYLAXIS
     Dosage: UNK
     Dates: end: 20170623
  20. FEBURIC [Concomitant]
     Active Substance: FEBUXOSTAT
     Indication: HYPERURICAEMIA
     Dosage: 10 MG, QD
     Route: 048
     Dates: start: 20171117, end: 20180730
  21. GRACEPTOR [Concomitant]
     Active Substance: TACROLIMUS
     Indication: PROPHYLAXIS
     Dosage: UNK
     Dates: start: 20170624
  22. LEVOFLOXACIN HEMIHYDRATE [Concomitant]
     Active Substance: LEVOFLOXACIN
     Indication: BRONCHITIS
     Dosage: UNK
     Dates: start: 20180112, end: 20180116
  23. VITAMEDIN                          /00274301/ [Concomitant]
     Active Substance: BENFOTIAMINE\CYANOCOBALAMIN\PYRIDOXINE HYDROCHLORIDE
     Indication: HEPATIC FUNCTION ABNORMAL
     Dosage: UNK
     Dates: start: 20180726, end: 20180813
  24. VEEN D [Concomitant]
     Active Substance: CALCIUM CHLORIDE\DEXTROSE\POTASSIUM CHLORIDE\SODIUM ACETATE\SODIUM CHLORIDE
     Indication: HEPATIC FUNCTION ABNORMAL
     Dosage: UNK
     Dates: start: 20180725, end: 20180725
  25. NOVORAPID [Concomitant]
     Active Substance: INSULIN ASPART
     Dosage: 9 IU, QD
     Dates: start: 20150930, end: 20151008
  26. LANTUS [Concomitant]
     Active Substance: INSULIN GLARGINE
     Indication: PRODUCT USED FOR UNKNOWN INDICATION
     Dosage: 2 IU, QD
     Dates: end: 20141205
  27. LANTUS [Concomitant]
     Active Substance: INSULIN GLARGINE
     Dosage: 3 IU, QD
     Dates: start: 20150923, end: 20150924
  28. LANTUS [Concomitant]
     Active Substance: INSULIN GLARGINE
     Dosage: 8 IU, QD
     Dates: start: 20160325, end: 20160624
  29. HUMALOG [Concomitant]
     Active Substance: INSULIN LISPRO
     Dosage: 8 IU, QD
     Dates: start: 20180728, end: 20180728
  30. HUMALOG [Concomitant]
     Active Substance: INSULIN LISPRO
     Dosage: 6 IU, QD
     Dates: start: 20181026, end: 20181026
  31. HUMALOG [Concomitant]
     Active Substance: INSULIN LISPRO
     Dosage: 18 IU, QD
     Dates: start: 20181102, end: 20181102
  32. HUMALOG [Concomitant]
     Active Substance: INSULIN LISPRO
     Dosage: 3 IU, QD
     Dates: start: 20181105, end: 20181105
  33. PREDONINE [Concomitant]
     Active Substance: PREDNISOLONE
     Indication: PROPHYLAXIS
  34. K-SUPPLY [Concomitant]
     Active Substance: POTASSIUM CHLORIDE
     Indication: PROPHYLAXIS
     Dosage: UNK
     Dates: start: 20150227, end: 20150303
  35. LIPACREON [Concomitant]
     Active Substance: PANCRELIPASE
     Indication: PROPHYLAXIS
     Dosage: UNK
     Dates: start: 20150310
  36. LUNESTA [Concomitant]
     Active Substance: ESZOPICLONE
     Indication: PROPHYLAXIS
     Dosage: UNK
     Dates: start: 20150312, end: 20150312
  37. LACTEC [Concomitant]
     Active Substance: CALCIUM CHLORIDE ANHYDROUS\POTASSIUM CHLORIDE\SODIUM CHLORIDE\SODIUM LACTATE
     Indication: HEPATIC FUNCTION ABNORMAL
     Dosage: UNK
     Dates: start: 20180726, end: 20180803
  38. LANTUS [Concomitant]
     Active Substance: INSULIN GLARGINE
     Dosage: 7 IU, QD
     Dates: start: 20151226, end: 20160121
  39. LANTUS [Concomitant]
     Active Substance: INSULIN GLARGINE
     Dosage: 10 IU, QD
     Dates: start: 20160128, end: 20160324
  40. LANTUS [Concomitant]
     Active Substance: INSULIN GLARGINE
     Dosage: 2 IU, QD
     Dates: start: 20180413, end: 20180726
  41. HUMALOG [Concomitant]
     Active Substance: INSULIN LISPRO
     Dosage: 4 IU, QD
     Dates: start: 20180304, end: 20180304
  42. HUMALOG [Concomitant]
     Active Substance: INSULIN LISPRO
     Dosage: 24 IU, QD
     Dates: start: 20181029, end: 20181029
  43. HUMALOG [Concomitant]
     Active Substance: INSULIN LISPRO
     Dosage: 28 IU, QD
     Dates: start: 20181031, end: 20181031
  44. PARIET [Concomitant]
     Active Substance: RABEPRAZOLE SODIUM
     Indication: PROPHYLAXIS
  45. SENNOSIDE [Concomitant]
     Active Substance: SENNOSIDES
     Indication: PROPHYLAXIS
     Dosage: UNK
     Dates: start: 20160124, end: 20160204
  46. MEIACT [Concomitant]
     Active Substance: CEFDITOREN PIVOXIL
     Indication: BRONCHITIS
     Dosage: UNK
     Dates: start: 20180323, end: 20180325
  47. BFLUID [Concomitant]
     Active Substance: AMINO ACIDS\DEXTROSE\ELECTROLYTES NOS\VITAMINS
     Indication: HEPATIC FUNCTION ABNORMAL
     Dosage: UNK
     Dates: start: 20180726, end: 20180813
  48. CEFMETAZOLE SODIUM [Concomitant]
     Active Substance: CEFMETAZOLE SODIUM
     Indication: HEPATIC FUNCTION ABNORMAL
     Dosage: UNK
     Dates: start: 20180730, end: 20180802
  49. BEZATOL SR [Concomitant]
     Active Substance: BEZAFIBRATE
     Indication: PRODUCT USED FOR UNKNOWN INDICATION
     Dosage: 200 MG, QD
     Route: 048
     Dates: end: 20141211
  50. BEZATOL SR [Concomitant]
     Active Substance: BEZAFIBRATE
     Dosage: 200 MG, QD
     Dates: start: 20151010, end: 20171117
  51. NOVORAPID [Concomitant]
     Active Substance: INSULIN ASPART
     Dosage: 6 IU, QD
     Dates: start: 20150519, end: 20150526
  52. NOVORAPID [Concomitant]
     Active Substance: INSULIN ASPART
     Dosage: 4 IU, QD
     Dates: start: 20150527, end: 20150924
  53. LANTUS [Concomitant]
     Active Substance: INSULIN GLARGINE
     Dosage: 5 IU, QD
     Dates: start: 20150924, end: 20150925
  54. LANTUS [Concomitant]
     Active Substance: INSULIN GLARGINE
     Dosage: 9 IU, QD
     Dates: start: 20160123, end: 20160123
  55. LANTUS [Concomitant]
     Active Substance: INSULIN GLARGINE
     Dosage: 2 IU, QD
     Dates: start: 20160903, end: 20161028
  56. HUMALOG [Concomitant]
     Active Substance: INSULIN LISPRO
     Dosage: 2 IU, QD
     Dates: start: 20180305, end: 20180305
  57. HUMALOG [Concomitant]
     Active Substance: INSULIN LISPRO
     Dosage: 20 IU, QD
     Dates: start: 20181028, end: 20181028
  58. AMINOLEBAN EN [Concomitant]
     Active Substance: UNSPECIFIED INGREDIENT
     Indication: PROPHYLAXIS
     Dosage: UNK
     Dates: start: 20150304, end: 20160202
  59. FEBURIC [Concomitant]
     Active Substance: FEBUXOSTAT
     Dosage: 5 MG, QD
     Dates: start: 20180731, end: 20180830
  60. CELECOX [Concomitant]
     Active Substance: CELECOXIB
     Indication: WRIST FRACTURE
     Dosage: UNK
     Dates: start: 20180627, end: 20180725
  61. LACTEC D                           /00895301/ [Concomitant]
     Indication: HEPATIC ENCEPHALOPATHY
     Dosage: UNK
     Dates: start: 20180302, end: 20180311
  62. IRRADIATED RED BLOOD CELLS-LEUKOCYTES REDUCED [Concomitant]
     Active Substance: HUMAN RED BLOOD CELL
     Indication: INJURY
     Dosage: UNK
     Dates: start: 20180511, end: 20180511
  63. METRELEPTIN SHIONOGI [Suspect]
     Active Substance: METRELEPTIN
     Dosage: 0.06 MG/KG, QD
     Route: 058
     Dates: start: 20150306, end: 20150310
  64. METRELEPTIN SHIONOGI [Suspect]
     Active Substance: METRELEPTIN
     Dosage: 0.08 MG/KG, QD
     Route: 058
     Dates: start: 20150311
  65. NOVORAPID [Concomitant]
     Active Substance: INSULIN ASPART
     Dosage: 11 IU, QD
     Dates: start: 20151009, end: 20151225
  66. LANTUS [Concomitant]
     Active Substance: INSULIN GLARGINE
     Dosage: 4 IU, QD
     Dates: start: 20160122, end: 20160122
  67. HUMALOG [Concomitant]
     Active Substance: INSULIN LISPRO
     Dosage: 8 IU, QD
     Dates: start: 20160625, end: 20160729
  68. HUMALOG [Concomitant]
     Active Substance: INSULIN LISPRO
     Dosage: 2 IU, QD
     Dates: start: 20180303, end: 20180303
  69. HUMALOG [Concomitant]
     Active Substance: INSULIN LISPRO
     Dosage: 18 IU, QD
     Dates: start: 20181027, end: 20181027
  70. ZOLPIDEM TARTRATE OD [Concomitant]
     Active Substance: ZOLPIDEM TARTRATE
     Indication: PROPHYLAXIS
     Dosage: UNK
     Dates: start: 20150312, end: 20150312
  71. CALONAL [Concomitant]
     Active Substance: ACETAMINOPHEN
     Indication: PROPHYLAXIS
     Dosage: UNK
     Dates: start: 20160129, end: 20160204
  72. MS REISHIPPU [Concomitant]
     Active Substance: CAMPHOR\MENTHOL\METHYL SALICYLATE
     Indication: PROPHYLAXIS
     Dosage: UNK
     Dates: start: 20160126, end: 20160204
  73. LECICARBON [Concomitant]
     Active Substance: SODIUM BICARBONATE\SODIUM PHOSPHATE, MONOBASIC
     Indication: PROPHYLAXIS
     Dosage: UNK
     Dates: start: 20160126, end: 20160204
  74. HUMULIN R [Concomitant]
     Active Substance: INSULIN HUMAN
     Dosage: 10 IU, QD
     Dates: start: 20180727, end: 20180727
  75. PHYSIO 140 [Concomitant]
     Active Substance: CALCIUM GLUCONATE\DEXTROSE\MAGNESIUM CHLORIDE\POTASSIUM CHLORIDE\SODIUM ACETATE\SODIUM CHLORIDE\TRISODIUM CITRATE DIHYDRATE
     Indication: HEPATIC FAILURE
     Dosage: UNK
     Dates: start: 20181026, end: 20181109
  76. METRELEPTIN SHIONOGI [Suspect]
     Active Substance: METRELEPTIN
     Dosage: 0.04 MG/KG, QD
     Route: 058
     Dates: start: 20150113, end: 20150305
  77. ZETIA [Concomitant]
     Active Substance: EZETIMIBE
     Indication: PRODUCT USED FOR UNKNOWN INDICATION
     Dosage: 10 MG, QD
     Route: 048
     Dates: end: 20160902
  78. EPADEL-S [Concomitant]
     Active Substance: ICOSAPENT ETHYL
     Indication: PRODUCT USED FOR UNKNOWN INDICATION
     Dosage: 1800 MG, QD
     Route: 048
  79. NOVORAPID [Concomitant]
     Active Substance: INSULIN ASPART
     Dosage: 4 IU, QD
     Dates: start: 20141129, end: 20141203
  80. LANTUS [Concomitant]
     Active Substance: INSULIN GLARGINE
     Dosage: 3 IU, QD
     Dates: start: 20150227, end: 20150518
  81. LANTUS [Concomitant]
     Active Substance: INSULIN GLARGINE
     Dosage: 12 IU, QD
     Dates: start: 20160124, end: 20160124
  82. LANTUS [Concomitant]
     Active Substance: INSULIN GLARGINE
     Dosage: 3 IU, QD
     Dates: start: 20160625, end: 20160902
  83. MIYA-BM [Concomitant]
     Active Substance: CLOSTRIDIUM BUTYRICUM SPORES STRAIN M-55
     Indication: PROPHYLAXIS
     Dosage: UNK
     Dates: start: 20150304
  84. FEBURIC [Concomitant]
     Active Substance: FEBUXOSTAT
     Dosage: 10 MG, QD
     Dates: start: 20180831
  85. INSULIN GLARGINE BS [Concomitant]
     Active Substance: INSULIN GLARGINE
     Dosage: 4 IU, QD
     Dates: start: 20181030, end: 20181031
  86. CEFZON                             /00559701/ [Concomitant]
     Indication: WRIST FRACTURE
     Dosage: UNK
     Dates: start: 20180627, end: 20180725
  87. ZOSYN [Concomitant]
     Active Substance: PIPERACILLIN SODIUM\TAZOBACTAM SODIUM
     Indication: HEPATIC ENCEPHALOPATHY
     Dosage: UNK
     Dates: start: 20180302, end: 20180305
  88. CEFTRIAXONE                        /00672202/ [Concomitant]
     Active Substance: CEFTRIAXONE
     Indication: INJURY
     Dosage: UNK
     Dates: start: 20180511, end: 20180511
  89. SOLDEM 3A [Concomitant]
     Active Substance: CARBOHYDRATES\POTASSIUM CHLORIDE\SODIUM CHLORIDE\SODIUM LACTATE
     Indication: HEPATIC FAILURE
     Dosage: UNK
     Dates: start: 20181026, end: 20181101
  90. METRELEPTIN SHIONOGI [Suspect]
     Active Substance: METRELEPTIN
     Indication: LIPOATROPHY
     Dosage: 0.04 MG/KG, QD
     Route: 058
     Dates: start: 20141128, end: 20141215
  91. NOVORAPID [Concomitant]
     Active Substance: INSULIN ASPART
     Indication: PRODUCT USED FOR UNKNOWN INDICATION
     Dosage: 10 IU, QD
     Dates: end: 20141128
  92. NOVORAPID [Concomitant]
     Active Substance: INSULIN ASPART
     Dosage: 2 IU, QD
     Dates: start: 20150309, end: 20150309
  93. NOVORAPID [Concomitant]
     Active Substance: INSULIN ASPART
     Dosage: 6 IU, QD
     Dates: start: 20150310, end: 20150310
  94. NOVORAPID [Concomitant]
     Active Substance: INSULIN ASPART
     Dosage: 6 IU, QD
     Dates: start: 20150925, end: 20150929
  95. HUMALOG [Concomitant]
     Active Substance: INSULIN LISPRO
     Dosage: 26 IU, QD
     Dates: start: 20181101, end: 20181101
  96. L-CARTIN [Concomitant]
     Active Substance: LEVOCARNITINE HYDROCHLORIDE
     Indication: PROPHYLAXIS
     Dosage: UNK
     Dates: end: 20150319
  97. KINDAVATE [Concomitant]
     Active Substance: CLOBETASONE BUTYRATE
     Indication: PROPHYLAXIS
     Dosage: UNK
     Dates: start: 20150227, end: 20150312
  98. TRAZODONE HYDROCHLORIDE. [Concomitant]
     Active Substance: TRAZODONE HYDROCHLORIDE
     Indication: PROPHYLAXIS
     Dosage: UNK
     Dates: start: 20160126, end: 20160204
  99. INSULIN GLARGINE BS [Concomitant]
     Active Substance: INSULIN GLARGINE
     Indication: PRODUCT USED FOR UNKNOWN INDICATION
     Dosage: 3 IU, QD
     Dates: start: 20181027, end: 20181029
  100. INSULIN GLARGINE BS [Concomitant]
     Active Substance: INSULIN GLARGINE
     Dosage: 3 IU, QD
     Dates: start: 20181101, end: 20181101
  101. PL [Concomitant]
     Active Substance: ACETAMINOPHEN\CAFFEINE\PROMETHAZINE\SALICYLAMIDE
     Indication: BRONCHITIS
     Dosage: UNK
     Dates: start: 20180112, end: 20180116
  102. MEIACT [Concomitant]
     Active Substance: CEFDITOREN PIVOXIL
     Indication: PHARYNGITIS
     Dosage: UNK
     Dates: start: 20180413, end: 20180415
  103. FRESH FROZEN PLASMA [Concomitant]
     Active Substance: HUMAN PLASMA
     Indication: HEPATIC FAILURE
     Dosage: UNK
     Dates: start: 20181026, end: 20181026
  104. PRIMPERAN [Concomitant]
     Active Substance: METOCLOPRAMIDE HYDROCHLORIDE
     Indication: HEPATIC FAILURE
     Dosage: UNK
     Dates: start: 20181026, end: 20181027
  105. METRELEPTIN SHIONOGI [Suspect]
     Active Substance: METRELEPTIN
     Dosage: 0.06 MG/KG, QD
     Route: 058
     Dates: start: 20141216, end: 20150112
  106. BEZATOL SR [Concomitant]
     Active Substance: BEZAFIBRATE
     Dosage: 200 MG, QD
     Dates: start: 20150109, end: 20150924
  107. NOVORAPID [Concomitant]
     Active Substance: INSULIN ASPART
     Dosage: 12 IU, QD
     Dates: start: 20150311, end: 20150518
  108. LANTUS [Concomitant]
     Active Substance: INSULIN GLARGINE
     Dosage: 7 IU, QD
     Dates: start: 20150925, end: 20151023
  109. LANTUS [Concomitant]
     Active Substance: INSULIN GLARGINE
     Dosage: 5 IU, QD
     Dates: start: 20151024, end: 20151225
  110. LANTUS [Concomitant]
     Active Substance: INSULIN GLARGINE
     Dosage: 13 IU, QD
     Dates: start: 20160125, end: 20160127
  111. HUMALOG [Concomitant]
     Active Substance: INSULIN LISPRO
     Dosage: 16 IU, QD
     Dates: start: 20160203, end: 20160524
  112. HUMALOG [Concomitant]
     Active Substance: INSULIN LISPRO
     Dosage: 2 IU, QD
     Dates: start: 20160730, end: 20161028
  113. HUMALOG [Concomitant]
     Active Substance: INSULIN LISPRO
     Dosage: 9 IU, QD
     Dates: start: 20180729, end: 20180729

REACTIONS (18)
  - Nasopharyngitis [Recovering/Resolving]
  - Shock haemorrhagic [Fatal]
  - Bronchitis [Recovered/Resolved]
  - Nasopharyngitis [Recovered/Resolved]
  - Femoral neck fracture [Recovering/Resolving]
  - Fall [Recovering/Resolving]
  - Hyperuricaemia [Recovering/Resolving]
  - Hepatic encephalopathy [Recovered/Resolved]
  - Hepatic function abnormal [Recovered/Resolved]
  - Osteonecrosis [Recovering/Resolving]
  - Tibia fracture [Recovering/Resolving]
  - Hepatic failure [Recovered/Resolved]
  - Pancytopenia [Not Recovered/Not Resolved]
  - Fall [Recovering/Resolving]
  - Wrist fracture [Recovering/Resolving]
  - Bronchitis [Recovered/Resolved]
  - Pharyngitis [Recovered/Resolved]
  - Injury [Recovered/Resolved]

NARRATIVE: CASE EVENT DATE: 20160122
